FAERS Safety Report 7913046-3 (Version None)
Quarter: 2011Q4

REPORT INFORMATION
  Report Type: 
  Country: None (occurrence: None)
  Receive Date: 20111114
  Receipt Date: 20111103
  Transmission Date: 20120403
  Serious: Yes (Other)
  Sender: FDA-Public Use
  Company Number: US-ASTRAZENECA-2011SE66793

PATIENT

DRUGS (22)
  1. ZYLOPRIM [Concomitant]
     Route: 048
  2. CRESTOR [Suspect]
     Route: 048
  3. VITAMIN D [Concomitant]
     Route: 048
  4. PREPARATION H [Concomitant]
     Indication: HAEMORRHOIDS
     Route: 054
  5. NITROSTAT [Concomitant]
     Indication: CHEST PAIN
     Dosage: 1 DF, MAY REPEAT EVERY 5 MINUTES IF NEEDED UP TO 3 TABLETS
     Route: 060
  6. DEMADEX [Concomitant]
  7. DEMADEX [Concomitant]
     Dosage: EXTRA 20 MG FOR WEIGHT GAIN OF 3 LB ONE DAY, 5 LB ONE WEEK
  8. ASPIRIN [Concomitant]
     Route: 048
  9. SYNTHROID [Concomitant]
     Route: 048
  10. PREPARATION H [Concomitant]
     Indication: PRURITUS
     Route: 054
  11. ALDACTONE [Concomitant]
     Route: 048
  12. COREG [Concomitant]
     Route: 048
  13. CINNAMON BARK [Concomitant]
     Route: 048
  14. VICODIN [Concomitant]
     Indication: PAIN
     Dosage: 5-500 MG 1-2 TABLETS EVERY 6 HOURS IF NEEDED, MAX ACETAMINOPHEN DOSE: 4000 MG IN 24 HRS
     Route: 048
  15. DEMADEX [Concomitant]
  16. ISOPTO TEARS [Concomitant]
     Indication: DRY EYE
     Dosage: 1 DROP INTO BOTH EYES EACH TIME IF NEEDED
  17. NOVOLOG MIX 70/30 [Concomitant]
     Dosage: 100 UNIT/ML (70-30), 26 UNITS 5-10 MINUTES PRE BKFT AND 28 UNITS 5-10 MINUTES PRE SUPPER
     Route: 058
  18. PROVENTIL, VENTOLIN [Concomitant]
     Dosage: 1-2 PUFFS EVERY 4-6 HOURS PRN
  19. COD LIVER OIL [Concomitant]
  20. COQ-10 [Concomitant]
     Route: 048
  21. DIOVAN [Concomitant]
     Route: 048
  22. VITAMIN E [Concomitant]
     Route: 048

REACTIONS (19)
  - RENAL IMPAIRMENT [None]
  - COR PULMONALE CHRONIC [None]
  - RHINITIS [None]
  - DIABETIC NEPHROPATHY [None]
  - CORONARY ARTERY DISEASE [None]
  - GOUT [None]
  - COUGH [None]
  - TREMOR [None]
  - PROTEINURIA [None]
  - HYPOTHYROIDISM [None]
  - PERIPHERAL VASCULAR DISORDER [None]
  - WEIGHT DECREASED [None]
  - HYPERTENSION [None]
  - OBESITY [None]
  - RENAL FAILURE CHRONIC [None]
  - ESSENTIAL HYPERTENSION [None]
  - RENAL FAILURE [None]
  - TYPE 2 DIABETES MELLITUS [None]
  - TYPE V HYPERLIPIDAEMIA [None]
